FAERS Safety Report 8711130 (Version 2)
Quarter: 2012Q4

REPORT INFORMATION
  Report Type: 
  Country: GB (occurrence: GB)
  Receive Date: 20120807
  Receipt Date: 20120925
  Transmission Date: 20130627
  Serious: Yes (Life-Threatening)
  Sender: FDA-Public Use
  Company Number: GB-AMGEN-GBRSP2012049044

PATIENT
  Age: 38 Year
  Sex: Male
  Weight: 111 kg

DRUGS (2)
  1. ENBREL [Suspect]
     Indication: ANKYLOSING SPONDYLITIS
     Dosage: 50 mg, weekly
     Route: 058
     Dates: start: 20120111, end: 201205
  2. SULPHASALAZINE [Concomitant]
     Dosage: UNK
     Dates: start: 201106

REACTIONS (1)
  - T-cell lymphoma [Not Recovered/Not Resolved]
